FAERS Safety Report 7744772-7 (Version None)
Quarter: 2011Q3

REPORT INFORMATION
  Report Type: 
  Country: None (occurrence: None)
  Receive Date: 20110912
  Receipt Date: 20110912
  Transmission Date: 20111222
  Serious: Yes (Other)
  Sender: FDA-Public Use
  Company Number: None

PATIENT
  Age: 63 Year
  Sex: Female
  Weight: 61.234 kg

DRUGS (1)
  1. FONDAPARINUX SODIUM [Suspect]
     Indication: DEEP VEIN THROMBOSIS
     Dosage: 7.5 MG
     Route: 008
     Dates: start: 20110804, end: 20110825

REACTIONS (8)
  - PRODUCT SUBSTITUTION ISSUE [None]
  - MYALGIA [None]
  - HYPOAESTHESIA [None]
  - DIARRHOEA [None]
  - HAEMORRHAGE [None]
  - PAIN IN EXTREMITY [None]
  - DIZZINESS [None]
  - DYSPNOEA [None]
